FAERS Safety Report 7022667-4 (Version None)
Quarter: 2010Q3

REPORT INFORMATION
  Report Type: 
  Country: None (occurrence: None)
  Receive Date: 20100916
  Receipt Date: 20100609
  Transmission Date: 20110219
  Serious: No
  Sender: FDA-Public Use
  Company Number: DKLU1062764

PATIENT

DRUGS (1)
  1. SABRIL [Suspect]
     Indication: GRAND MAL CONVULSION

REACTIONS (5)
  - DEPRESSION [None]
  - DYSPHEMIA [None]
  - IRRITABILITY [None]
  - MEMORY IMPAIRMENT [None]
  - MOOD ALTERED [None]
